FAERS Safety Report 21296931 (Version 1)
Quarter: 2022Q3

REPORT INFORMATION
  Report Type: Spontaneous
  Country: US (occurrence: US)
  Receive Date: 20220906
  Receipt Date: 20220906
  Transmission Date: 20221027
  Serious: Yes (Other)
  Sender: FDA-Public Use
  Company Number: US-LUPIN PHARMACEUTICALS INC.-2022-10802

PATIENT
  Age: 40 Year
  Sex: Male

DRUGS (5)
  1. RIFAMPIN [Suspect]
     Active Substance: RIFAMPIN
     Indication: Toxicity to various agents
     Dosage: 600 MG, ON DAY 3
     Route: 048
  2. RIFAMPIN [Suspect]
     Active Substance: RIFAMPIN
     Dosage: 600 MG, TWO ADDITIONAL DOSES ON DAY 4
     Route: 048
  3. NIRMATRELVIR\RITONAVIR [Concomitant]
     Active Substance: NIRMATRELVIR\RITONAVIR
     Indication: COVID-19
     Dosage: UNK, 150/100MG
     Route: 065
  4. TACROLIMUS [Concomitant]
     Active Substance: TACROLIMUS
     Indication: Immunosuppressant drug therapy
     Dosage: UNK, 6MG IN THE MORNING AND 5MG AT NIGHT
     Route: 065
  5. TACROLIMUS [Concomitant]
     Active Substance: TACROLIMUS
     Dosage: UNK, 3MG IN THE MORNING AND 2MG AT NIGHT- ALONG WITH NIRMATRELVIR+RITONAVIR
     Route: 065

REACTIONS (2)
  - Hypertransaminasaemia [Recovering/Resolving]
  - Off label use [Unknown]
